FAERS Safety Report 4752007-2 (Version None)
Quarter: 2005Q3

REPORT INFORMATION
  Report Type: 
  Country: None (occurrence: None)
  Receive Date: 20050822
  Receipt Date: 20050706
  Transmission Date: 20060218
  Serious: No
  Sender: FDA-Public Use
  Company Number: PHEH2005US07460

PATIENT
  Sex: Female

DRUGS (1)
  1. ZELNORM [Suspect]
     Indication: CONSTIPATION
     Dosage: 6 MG, BID, ORAL;  6 MG IN AM; 12 MG PM, ORAL;  6 MG, BID, ORAL
     Route: 048
     Dates: start: 20050629

REACTIONS (3)
  - CONSTIPATION [None]
  - DRUG INEFFECTIVE [None]
  - MEDICATION ERROR [None]
